FAERS Safety Report 15240904 (Version 1)
Quarter: 2018Q3

REPORT INFORMATION
  Report Type: Spontaneous
  Country: US (occurrence: US)
  Receive Date: 20180711
  Receipt Date: 20180711
  Transmission Date: 20181010
  Serious: Yes (Hospitalization)
  Sender: FDA-Public Use
  Company Number: None

PATIENT
  Sex: Female

DRUGS (12)
  1. ASPIRIN. [Concomitant]
     Active Substance: ASPIRIN
  2. ZETIA [Concomitant]
     Active Substance: EZETIMIBE
  3. CARAFATE [Concomitant]
     Active Substance: SUCRALFATE
  4. GLIPIZIDE ER [Concomitant]
     Active Substance: GLIPIZIDE
  5. TRAMADOL. [Concomitant]
     Active Substance: TRAMADOL
  6. SPRYCEL [Suspect]
     Active Substance: DASATINIB
     Indication: CHRONIC MYELOID LEUKAEMIA
     Route: 048
     Dates: start: 20180129
  7. CYMBALTA [Concomitant]
     Active Substance: DULOXETINE HYDROCHLORIDE
  8. LISINOPRIL. [Concomitant]
     Active Substance: LISINOPRIL
  9. PLAVIX [Concomitant]
     Active Substance: CLOPIDOGREL BISULFATE
  10. VITAMIN D [Concomitant]
     Active Substance: CHOLECALCIFEROL
  11. CYCLOBENZAPR [Concomitant]
     Active Substance: CYCLOBENZAPRINE
  12. MIRAPEX [Concomitant]
     Active Substance: PRAMIPEXOLE DIHYDROCHLORIDE

REACTIONS (2)
  - Drug dose omission [None]
  - Surgery [None]
